FAERS Safety Report 4354083-8 (Version None)
Quarter: 2004Q2

REPORT INFORMATION
  Report Type: 
  Country: None (occurrence: None)
  Receive Date: 20040503
  Receipt Date: 20040415
  Transmission Date: 20050107
  Serious: Yes (Other)
  Sender: FDA-Public Use
  Company Number: DSA_24266_2004

PATIENT
  Age: 74 Year
  Sex: Female

DRUGS (4)
  1. HERBESSER (INTRAVENOUS) [Suspect]
     Indication: HYPERTENSION
  2. NITROUS OXIDE [Concomitant]
  3. ISOFLURANE [Concomitant]
  4. FENTANYL CITRATE [Concomitant]

REACTIONS (3)
  - NODAL RHYTHM [None]
  - PROCEDURAL HYPOTENSION [None]
  - SURGICAL PROCEDURE REPEATED [None]
